FAERS Safety Report 17562614 (Version 1)
Quarter: 2020Q1

REPORT INFORMATION
  Report Type: Spontaneous
  Country: CA (occurrence: CA)
  Receive Date: 20200319
  Receipt Date: 20200319
  Transmission Date: 20200409
  Serious: Yes (Other)
  Sender: FDA-Public Use
  Company Number: CA-TEVA-2020-CA-1207425

PATIENT
  Age: 74 Year
  Sex: Female

DRUGS (3)
  1. CIMZIA [Concomitant]
     Active Substance: CERTOLIZUMAB PEGOL
  2. METHOTREXATE. [Suspect]
     Active Substance: METHOTREXATE
     Indication: RHEUMATOID ARTHRITIS
     Route: 065
  3. HYDROXYCHLOROQUINE [Concomitant]
     Active Substance: HYDROXYCHLOROQUINE

REACTIONS (4)
  - Asthma [Unknown]
  - Lung disorder [Unknown]
  - Pneumonia [Unknown]
  - Interstitial lung disease [Unknown]
